FAERS Safety Report 8340484-X (Version None)
Quarter: 2012Q2

REPORT INFORMATION
  Report Type: 
  Country: None (occurrence: None)
  Receive Date: 20120507
  Receipt Date: 20090709
  Transmission Date: 20120825
  Serious: No
  Sender: FDA-Public Use
  Company Number: US-TEVA-2009008317

PATIENT
  Age: 56 Year
  Sex: Female
  Weight: 60.836 kg

DRUGS (2)
  1. RITUXAN [Concomitant]
  2. TREANDA [Suspect]
     Indication: B-CELL LYMPHOMA
     Route: 042
     Dates: start: 20080901, end: 20090201

REACTIONS (5)
  - SPUTUM INCREASED [None]
  - CONSTIPATION [None]
  - ALLERGIC COUGH [None]
  - PAIN [None]
  - RASH PRURITIC [None]
